FAERS Safety Report 8325607-0 (Version None)
Quarter: 2012Q2

REPORT INFORMATION
  Report Type: 
  Country: None (occurrence: None)
  Receive Date: 20120501
  Receipt Date: 20100528
  Transmission Date: 20120825
  Serious: No
  Sender: FDA-Public Use
  Company Number: US-TEVA-2010002726

PATIENT
  Sex: Male
  Weight: 59.928 kg

DRUGS (8)
  1. SINGULAIR [Concomitant]
     Indication: SEASONAL ALLERGY
     Dosage: 10 MILLIGRAM;
  2. LEXAPRO [Concomitant]
     Indication: ANXIETY
     Dosage: 10 MILLIGRAM;
     Dates: start: 20090101
  3. ALLEGRA [Concomitant]
     Indication: SEASONAL ALLERGY
     Dosage: 180 MILLIGRAM;
  4. SEROQUEL [Concomitant]
     Dosage: 50 MILLIGRAM;
     Dates: start: 20070101
  5. ALPRAZOLAM [Concomitant]
     Indication: ANXIETY
     Dosage: 4 MILLIGRAM;
     Dates: start: 19930101
  6. LAMICTAL [Concomitant]
     Indication: BIPOLAR DISORDER
     Dosage: 150 MILLIGRAM;
     Dates: start: 20090301
  7. NASONEX [Concomitant]
     Indication: SEASONAL ALLERGY
  8. NUVIGIL [Suspect]
     Indication: SOMNOLENCE
     Dosage: 250 MILLIGRAM;
     Route: 048
     Dates: start: 20100201

REACTIONS (1)
  - PRURITUS [None]
